FAERS Safety Report 4722122-8 (Version None)
Quarter: 2005Q3

REPORT INFORMATION
  Report Type: 
  Country: None (occurrence: None)
  Receive Date: 20050722
  Receipt Date: 20040729
  Transmission Date: 20060218
  Serious: No
  Sender: FDA-Public Use
  Company Number: US-GLAXOSMITHKLINE-A0520313A

PATIENT
  Sex: Female

DRUGS (2)
  1. AVANDIA [Suspect]
     Dosage: 2MG TWICE PER DAY
     Route: 048
     Dates: start: 20040701, end: 20040721
  2. HIGH BLOOD PRESSURE PILL [Concomitant]

REACTIONS (3)
  - DIARRHOEA [None]
  - HYPERHIDROSIS [None]
  - NAUSEA [None]
